FAERS Safety Report 6782770-0 (Version None)
Quarter: 2010Q2

REPORT INFORMATION
  Report Type: 
  Country: None (occurrence: None)
  Receive Date: 20100621
  Receipt Date: 20100617
  Transmission Date: 20101027
  Serious: Yes (Hospitalization)
  Sender: FDA-Public Use
  Company Number: FR-MERCK-1006FRA00066

PATIENT
  Age: 76 Year
  Sex: Female

DRUGS (6)
  1. FOSAMAX [Suspect]
     Indication: OSTEOPOROSIS
     Route: 048
     Dates: end: 20100301
  2. FLUINDIONE [Suspect]
     Route: 048
     Dates: start: 20020101, end: 20100301
  3. PREDNISONE [Suspect]
     Route: 048
     Dates: end: 20100301
  4. RILMENIDINE PHOSPHATE [Concomitant]
     Indication: HYPERTENSION
     Route: 065
  5. NICARDIPINE HYDROCHLORIDE [Concomitant]
     Indication: HYPERTENSION
     Route: 065
  6. AMIODARONE HYDROCHLORIDE [Concomitant]
     Route: 065

REACTIONS (1)
  - LEUKOCYTOCLASTIC VASCULITIS [None]
